FAERS Safety Report 21627360 (Version 1)
Quarter: 2022Q4

REPORT INFORMATION
  Report Type: Spontaneous
  Country: US (occurrence: None)
  Receive Date: 20221121
  Receipt Date: 20221121
  Transmission Date: 20230113
  Serious: Yes (Hospitalization)
  Sender: FDA-Public Use
  Company Number: None

PATIENT
  Age: 74 Year
  Sex: Female
  Weight: 72.45 kg

DRUGS (2)
  1. EVUSHELD [Suspect]
     Active Substance: CILGAVIMAB\TIXAGEVIMAB
     Indication: COVID-19 prophylaxis
     Dosage: FREQUENCY : ONCE;?
     Route: 030
     Dates: start: 20221119, end: 20221119
  2. XPOVIO [Suspect]
     Active Substance: SELINEXOR
     Indication: Plasma cell myeloma
     Dosage: FREQUENCY : TWICE A WEEK;?
     Route: 048
     Dates: start: 20221114

REACTIONS (8)
  - Syncope [None]
  - Head injury [None]
  - Lip injury [None]
  - Contusion [None]
  - Dizziness [None]
  - Loss of consciousness [None]
  - Memory impairment [None]
  - Mental status changes [None]

NARRATIVE: CASE EVENT DATE: 20221119
